FAERS Safety Report 15410666 (Version 1)
Quarter: 2018Q3

REPORT INFORMATION
  Report Type: Spontaneous
  Country: US (occurrence: US)
  Receive Date: 20180921
  Receipt Date: 20180921
  Transmission Date: 20181010
  Serious: Yes (Hospitalization, Other)
  Sender: FDA-Public Use
  Company Number: US-HIKMA PHARMACEUTICALS USA INC.-US-H14001-18-07426

PATIENT
  Age: 24 Year
  Sex: Female

DRUGS (3)
  1. PALIPERIDONE. [Concomitant]
     Active Substance: PALIPERIDONE
     Indication: PRADER-WILLI SYNDROME
     Route: 065
  2. OXCARBAZEPINE. [Suspect]
     Active Substance: OXCARBAZEPINE
     Indication: PRADER-WILLI SYNDROME
     Route: 048
  3. RISPERIDONE. [Concomitant]
     Active Substance: RISPERIDONE
     Indication: PRADER-WILLI SYNDROME
     Route: 048

REACTIONS (5)
  - Pancytopenia [Unknown]
  - Hyponatraemia [Recovered/Resolved]
  - Catatonia [Recovered/Resolved]
  - Bradycardia [Recovered/Resolved]
  - Drug withdrawal syndrome [Recovered/Resolved]
